FAERS Safety Report 18149802 (Version 1)
Quarter: 2020Q3

REPORT INFORMATION
  Report Type: Spontaneous
  Country: US (occurrence: US)
  Receive Date: 20200813
  Receipt Date: 20200813
  Transmission Date: 20201103
  Serious: Yes (Disabling)
  Sender: FDA-Public Use
  Company Number: None

PATIENT
  Age: 29 Year
  Sex: Female
  Weight: 49.5 kg

DRUGS (1)
  1. INVEGA SUSTENNA [Suspect]
     Active Substance: PALIPERIDONE PALMITATE
     Indication: SCHIZOPHRENIA
     Dosage: ?          QUANTITY:2 INJECTION(S);OTHER FREQUENCY:2 DISCRETE INJECTS;?
     Route: 030
     Dates: start: 20200331, end: 20200406

REACTIONS (5)
  - Bipolar disorder [None]
  - Intracranial pressure increased [None]
  - Headache [None]
  - Overdose [None]
  - Cognitive disorder [None]

NARRATIVE: CASE EVENT DATE: 20200407
